FAERS Safety Report 18246284 (Version 1)
Quarter: 2020Q3

REPORT INFORMATION
  Report Type: Spontaneous
  Country: US (occurrence: US)
  Receive Date: 20200909
  Receipt Date: 20200909
  Transmission Date: 20201103
  Serious: Yes (Other)
  Sender: FDA-Public Use
  Company Number: None

PATIENT
  Age: 47 Year
  Sex: Female

DRUGS (2)
  1. DALVANCE [Concomitant]
     Active Substance: DALBAVANCIN
     Dates: start: 20200903, end: 20200903
  2. DALVANCE [Suspect]
     Active Substance: DALBAVANCIN
     Indication: AMASTIA
     Route: 042
     Dates: start: 20200903, end: 20200903

REACTIONS (4)
  - Feeling cold [None]
  - Tremor [None]
  - Chills [None]
  - Bone pain [None]

NARRATIVE: CASE EVENT DATE: 20200903
